FAERS Safety Report 9759818 (Version 1)
Quarter: 2013Q4

REPORT INFORMATION
  Report Type: Spontaneous
  Country: FR (occurrence: FR)
  Receive Date: 20131216
  Receipt Date: 20131216
  Transmission Date: 20140711
  Serious: Yes (Hospitalization)
  Sender: FDA-Public Use
  Company Number: FR-PFIZER INC-2013351789

PATIENT
  Age: 20 Year
  Sex: Male

DRUGS (1)
  1. TAZOCILLINE [Suspect]
     Indication: BACTERIAL TEST POSITIVE
     Dosage: 4 G, 3X/DAY
     Route: 042
     Dates: start: 20131004, end: 20131021

REACTIONS (3)
  - Neutropenia [Recovered/Resolved]
  - Pyrexia [Recovered/Resolved]
  - Bicytopenia [Recovered/Resolved]
